FAERS Safety Report 6354443-X (Version None)
Quarter: 2009Q3

REPORT INFORMATION
  Report Type: 
  Country: None (occurrence: None)
  Receive Date: 20090909
  Receipt Date: 20090825
  Transmission Date: 20100115
  Serious: Yes (Hospitalization)
  Sender: FDA-Public Use
  Company Number: AUR-APU-2009-00520

PATIENT
  Sex: Female

DRUGS (1)
  1. AMOXICILLIN [Suspect]

REACTIONS (1)
  - IRRITABLE BOWEL SYNDROME [None]
